FAERS Safety Report 6021313-6 (Version None)
Quarter: 2008Q4

REPORT INFORMATION
  Report Type: 
  Country: None (occurrence: None)
  Receive Date: 20081229
  Receipt Date: 20081215
  Transmission Date: 20090506
  Serious: Yes (Other)
  Sender: FDA-Public Use
  Company Number: US-PFIZER INC-2008154888

PATIENT
  Sex: Male
  Weight: 81.633 kg

DRUGS (4)
  1. LIPITOR [Suspect]
     Indication: BLOOD CHOLESTEROL INCREASED
     Dosage: UNK
  2. ACETYLSALICYLIC ACID [Concomitant]
     Dosage: UNK
  3. PLAVIX [Concomitant]
     Dosage: UNK
  4. ALTACE [Concomitant]
     Dosage: UNK

REACTIONS (4)
  - CORONARY ARTERIAL STENT INSERTION [None]
  - DEPRESSED MOOD [None]
  - MUSCLE INJURY [None]
  - TENDON RUPTURE [None]
